FAERS Safety Report 19608438 (Version 1)
Quarter: 2021Q3

REPORT INFORMATION
  Report Type: Spontaneous
  Country: DE (occurrence: DE)
  Receive Date: 20210726
  Receipt Date: 20210726
  Transmission Date: 20211014
  Serious: Yes (Other)
  Sender: FDA-Public Use
  Company Number: NVSC2021DE162935

PATIENT
  Sex: Female

DRUGS (1)
  1. BEOVU [Suspect]
     Active Substance: BROLUCIZUMAB-DBLL
     Indication: NEOVASCULAR AGE-RELATED MACULAR DEGENERATION
     Dosage: 6 MG
     Route: 031
     Dates: start: 20210610, end: 20210610

REACTIONS (4)
  - Visual impairment [Recovered/Resolved with Sequelae]
  - Wound healing normal [Recovered/Resolved with Sequelae]
  - Keratic precipitates [Recovered/Resolved with Sequelae]
  - Mydriasis [Recovered/Resolved with Sequelae]

NARRATIVE: CASE EVENT DATE: 20210705
